FAERS Safety Report 5895288-4 (Version None)
Quarter: 2008Q3

REPORT INFORMATION
  Report Type: 
  Country: None (occurrence: None)
  Receive Date: 20080924
  Receipt Date: 20080911
  Transmission Date: 20090109
  Serious: Yes (Hospitalization, Other)
  Sender: FDA-Public Use
  Company Number: US-PFIZER INC-2008079639

PATIENT
  Sex: Male
  Weight: 102.1 kg

DRUGS (6)
  1. CHANTIX [Suspect]
     Dates: start: 20080901, end: 20080910
  2. ALL OTHER THERAPEUTIC PRODUCTS [Interacting]
     Indication: DEPRESSION
  3. PRILOSEC [Concomitant]
  4. COMBIVENT [Concomitant]
     Route: 055
  5. QVAR 40 [Concomitant]
     Route: 055
  6. OTHER RESPIRATORY SYSTEM PRODUCTS [Concomitant]

REACTIONS (5)
  - ABASIA [None]
  - ACTIVITIES OF DAILY LIVING IMPAIRED [None]
  - ADVERSE EVENT [None]
  - DRUG INTERACTION [None]
  - SPEECH DISORDER [None]
